FAERS Safety Report 20629676 (Version 1)
Quarter: 2022Q1

REPORT INFORMATION
  Report Type: Spontaneous
  Country: US (occurrence: US)
  Receive Date: 20220323
  Receipt Date: 20220323
  Transmission Date: 20220423
  Serious: No
  Sender: FDA-Public Use
  Company Number: US-LUNDBECK-DKLU3045962

PATIENT
  Age: 75 Year
  Sex: Male

DRUGS (1)
  1. VYEPTI [Suspect]
     Active Substance: EPTINEZUMAB-JJMR
     Indication: Migraine
     Route: 041
     Dates: start: 20220210

REACTIONS (11)
  - Swelling face [Recovering/Resolving]
  - Erythema [Recovering/Resolving]
  - Nasopharyngitis [Recovering/Resolving]
  - Headache [Recovering/Resolving]
  - Oropharyngeal pain [Recovering/Resolving]
  - Pain [Recovering/Resolving]
  - Toothache [Recovering/Resolving]
  - Stomatitis [Recovering/Resolving]
  - Feeling cold [Recovering/Resolving]
  - Dizziness [Not Recovered/Not Resolved]
  - Throat irritation [Not Recovered/Not Resolved]
